FAERS Safety Report 14109702 (Version 1)
Quarter: 2017Q4

REPORT INFORMATION
  Report Type: Spontaneous
  Country: NL (occurrence: NL)
  Receive Date: 20171020
  Receipt Date: 20171020
  Transmission Date: 20180321
  Serious: Yes (Other)
  Sender: FDA-Public Use
  Company Number: NL-ASTRAZENECA-2017SF06696

PATIENT
  Age: 22319 Day
  Sex: Male

DRUGS (1)
  1. CRESTOR [Suspect]
     Active Substance: ROSUVASTATIN CALCIUM
     Route: 048
     Dates: start: 20031113, end: 20051114

REACTIONS (8)
  - Arthritis [Unknown]
  - Fatigue [Unknown]
  - Gait disturbance [Unknown]
  - Pruritus [Recovered/Resolved]
  - Muscle atrophy [Unknown]
  - Muscular dystrophy [Unknown]
  - Myalgia [Recovered/Resolved]
  - Neuropathy peripheral [Unknown]

NARRATIVE: CASE EVENT DATE: 20050201
